FAERS Safety Report 9305413 (Version 2)
Quarter: 2013Q2

REPORT INFORMATION
  Report Type: Spontaneous
  Country: DE (occurrence: DE)
  Receive Date: 20130523
  Receipt Date: 20130620
  Transmission Date: 20140414
  Serious: Yes (Death)
  Sender: FDA-Public Use
  Company Number: DE-BRISTOL-MYERS SQUIBB COMPANY-18923383

PATIENT
  Age: 93 Year
  Sex: Female
  Weight: 100 kg

DRUGS (6)
  1. ELIQUIS [Suspect]
  2. CARMEN [Concomitant]
     Indication: BLOOD PRESSURE
  3. KARVEZIDE [Concomitant]
     Indication: BLOOD PRESSURE
     Dosage: 300/12.5MG/DAY
  4. FUROSEMIDE [Concomitant]
     Indication: BLOOD PRESSURE
  5. PANTOZOL [Concomitant]
  6. SPASMO-URGENIN [Concomitant]
     Indication: INCONTINENCE

REACTIONS (1)
  - Death [Fatal]
